FAERS Safety Report 4422529-2 (Version None)
Quarter: 2004Q3

REPORT INFORMATION
  Report Type: 
  Country: None (occurrence: None)
  Receive Date: 20040713
  Receipt Date: 20040223
  Transmission Date: 20050211
  Serious: No
  Sender: FDA-Public Use
  Company Number: PHEH2004US00909

PATIENT
  Age: 55 Year
  Sex: Female
  Weight: 77.1 kg

DRUGS (9)
  1. ELIDEL [Suspect]
     Indication: DRY SKIN
     Dosage: BID, TOPICAL
     Route: 061
     Dates: start: 20040114, end: 20040114
  2. ASPIRIN [Concomitant]
  3. LIPITOR [Concomitant]
  4. ACIPHEX [Concomitant]
  5. ACCUPRIL [Concomitant]
  6. CELEXA [Concomitant]
  7. GEMFIBROZIL [Concomitant]
  8. MULTIVITAMINS (RETINOL, PANTHENOL) [Concomitant]
  9. DOXYCYCLINE [Concomitant]

REACTIONS (4)
  - APPLICATION SITE BURNING [None]
  - APPLICATION SITE DRYNESS [None]
  - APPLICATION SITE PRURITUS [None]
  - APPLICATION SITE WARMTH [None]
